FAERS Safety Report 19309041 (Version 1)
Quarter: 2021Q2

REPORT INFORMATION
  Report Type: Spontaneous
  Country: US (occurrence: US)
  Receive Date: 20210526
  Receipt Date: 20210526
  Transmission Date: 20210717
  Serious: Yes (Hospitalization, Other)
  Sender: FDA-Public Use
  Company Number: US-DRREDDYS-USA/USA/21/0135843

PATIENT
  Age: 80 Year
  Sex: Female

DRUGS (1)
  1. HEPARIN SODIUM. [Suspect]
     Active Substance: HEPARIN SODIUM
     Indication: TRANSCATHETER AORTIC VALVE IMPLANTATION

REACTIONS (6)
  - Heparin-induced thrombocytopenia [Recovering/Resolving]
  - Hypercoagulation [Unknown]
  - Coronary artery thrombosis [Unknown]
  - Acute myocardial infarction [Unknown]
  - Coronary artery occlusion [Unknown]
  - Pulmonary embolism [Unknown]
